FAERS Safety Report 4716546-2 (Version None)
Quarter: 2005Q3

REPORT INFORMATION
  Report Type: 
  Country: None (occurrence: None)
  Receive Date: 20050718
  Receipt Date: 20050711
  Transmission Date: 20060218
  Serious: Yes (Death, Other)
  Sender: FDA-Public Use
  Company Number: 74-949

PATIENT
  Age: 50 Year
  Sex: Female

DRUGS (4)
  1. CLOZAPINE [Suspect]
     Indication: SCHIZOAFFECTIVE DISORDER
     Dosage: 250 MG BID ORAL
     Route: 048
     Dates: start: 20020101, end: 20050401
  2. GEODON [Concomitant]
  3. REMERON [Concomitant]
  4. DEPAKOTE [Concomitant]

REACTIONS (3)
  - CONFUSIONAL STATE [None]
  - DYSPNOEA [None]
  - LUNG NEOPLASM MALIGNANT [None]
